FAERS Safety Report 4402785-7 (Version None)
Quarter: 2004Q3

REPORT INFORMATION
  Report Type: 
  Country: None (occurrence: None)
  Receive Date: 20040721
  Receipt Date: 20030730
  Transmission Date: 20050211
  Serious: No
  Sender: FDA-Public Use
  Company Number: US-BRISTOL-MYERS SQUIBB COMPANY-12341624

PATIENT
  Age: 28 Year
  Sex: Female

DRUGS (8)
  1. ZERIT [Suspect]
     Indication: HIV TEST POSITIVE
     Route: 048
  2. SUSTIVA [Concomitant]
  3. EPIVIR [Concomitant]
  4. KALETRA [Concomitant]
  5. ZIAGEN [Concomitant]
  6. BACTRIM [Concomitant]
  7. VALTREX [Concomitant]
  8. VERSED [Concomitant]

REACTIONS (6)
  - ASTHENIA [None]
  - DYSGEUSIA [None]
  - HOT FLUSH [None]
  - NAUSEA [None]
  - PAROSMIA [None]
  - RASH [None]
